FAERS Safety Report 9369829 (Version 3)
Quarter: 2014Q1

REPORT INFORMATION
  Report Type: Spontaneous
  Country: IT (occurrence: IT)
  Receive Date: 20130626
  Receipt Date: 20140130
  Transmission Date: 20141002
  Serious: Yes (Life-Threatening, Hospitalization)
  Sender: FDA-Public Use
  Company Number: IT-BRISTOL-MYERS SQUIBB COMPANY-19035252

PATIENT
  Age: 74 Year
  Sex: Female

DRUGS (5)
  1. GLUCOPHAGE TABS [Suspect]
     Indication: DIABETES MELLITUS
     Dosage: 100MG TABS
     Route: 048
     Dates: start: 20110101, end: 20130521
  2. DOXAZOSIN MESILATE [Concomitant]
     Indication: HYPERTENSION
     Dosage: TABS
     Route: 048
     Dates: start: 20130521
  3. BLOPRESS PLUS [Concomitant]
     Indication: HYPERTENSION
     Route: 048
     Dates: end: 20130521
  4. SOLOSA [Concomitant]
     Indication: DIABETES MELLITUS
     Dosage: 3MG TABS
     Route: 048
     Dates: end: 20130521
  5. AKINETON [Concomitant]
     Indication: PSYCHOTIC DISORDER
     Route: 048
     Dates: end: 20130521

REACTIONS (3)
  - Renal failure acute [Recovered/Resolved]
  - Lactic acidosis [Recovered/Resolved]
  - Metabolic acidosis [Recovered/Resolved]
